FAERS Safety Report 10688200 (Version 1)
Quarter: 2014Q4

REPORT INFORMATION
  Report Type: Spontaneous
  Country: FR (occurrence: None)
  Receive Date: 20141231
  Receipt Date: 20141231
  Transmission Date: 20150529
  Serious: Yes (Other)
  Sender: FDA-Public Use
  Company Number: 20142688

PATIENT
  Age: 57 Year
  Sex: Male

DRUGS (5)
  1. DIAMICRON (GLICLAZIDE) [Concomitant]
     Active Substance: GLICLAZIDE
  2. METOJECT (METHOTREXATE SODIUM) [Suspect]
     Active Substance: METHOTREXATE SODIUM
     Indication: ANKYLOSING SPONDYLITIS
     Route: 051
  3. SIMPONI [Suspect]
     Active Substance: GOLIMUMAB
     Indication: ANKYLOSING SPONDYLITIS
     Route: 058
     Dates: start: 201311, end: 20140815
  4. NISIS [Concomitant]
     Active Substance: VALSARTAN
  5. METFORMIN [Concomitant]
     Active Substance: METFORMIN HYDROCHLORIDE

REACTIONS (11)
  - Chillblains [None]
  - Erythema multiforme [None]
  - Rash papular [None]
  - Disease recurrence [None]
  - Mouth ulceration [None]
  - Genital ulceration [None]
  - Nail discolouration [None]
  - Lupus vasculitis [None]
  - Palmar erythema [None]
  - Granuloma annulare [None]
  - Dermatomyositis [None]

NARRATIVE: CASE EVENT DATE: 201408
